FAERS Safety Report 8582972-7 (Version None)
Quarter: 2012Q3

REPORT INFORMATION
  Report Type: 
  Country: None (occurrence: None)
  Receive Date: 20120809
  Receipt Date: 20120731
  Transmission Date: 20120928
  Serious: Yes (Hospitalization)
  Sender: FDA-Public Use
  Company Number: CA-BRISTOL-MYERS SQUIBB COMPANY-16481566

PATIENT
  Age: 54 Year
  Sex: Female

DRUGS (6)
  1. ORENCIA [Suspect]
     Indication: RHEUMATOID ARTHRITIS
     Dosage: INF: 37 LAST: 22MAR12,31JUL12;2C80093;SEP14
     Route: 042
     Dates: start: 20090904
  2. TYLENOL [Concomitant]
  3. ATENOLOL AND CHLORTHALIDONE [Concomitant]
     Dosage: ATENIDONE
  4. PREDNISONE TAB [Concomitant]
  5. PLAQUENIL [Concomitant]
  6. CELEBREX [Concomitant]

REACTIONS (1)
  - CHEST PAIN [None]
